FAERS Safety Report 6317928-8 (Version None)
Quarter: 2009Q3

REPORT INFORMATION
  Report Type: 
  Country: None (occurrence: None)
  Receive Date: 20090820
  Receipt Date: 20090820
  Transmission Date: 20100115
  Serious: Yes (Other)
  Sender: FDA-Public Use
  Company Number: None

PATIENT
  Sex: Male
  Weight: 68.9467 kg

DRUGS (10)
  1. MEBENDAZOLE [Suspect]
     Indication: ENTEROBIASIS
     Dosage: 100MG WEEKLY PO
     Route: 048
     Dates: start: 20090515, end: 20090529
  2. ACETAMINOPHEN [Concomitant]
  3. ARIPIPRAZOLE [Concomitant]
  4. DIVALPROEX SODIUM [Concomitant]
  5. ERGOCALCIFEROL [Concomitant]
  6. LEVOTHYROXINE SODIUM [Concomitant]
  7. MINERAL OIL HEAVY [Concomitant]
  8. OLANZAPINE [Concomitant]
  9. POLYETHYLENE GLYCO [Concomitant]
  10. VITAMINES/MINERALS [Concomitant]

REACTIONS (2)
  - ASPARTATE AMINOTRANSFERASE INCREASED [None]
  - BLOOD LACTATE DEHYDROGENASE INCREASED [None]
